FAERS Safety Report 13903298 (Version 1)
Quarter: 2017Q3

REPORT INFORMATION
  Report Type: Spontaneous
  Country: US (occurrence: US)
  Receive Date: 20170824
  Receipt Date: 20170824
  Transmission Date: 20171127
  Serious: No
  Sender: FDA-Public Use
  Company Number: US-PFIZER INC-2017361105

PATIENT
  Age: 47 Year
  Sex: Female

DRUGS (1)
  1. METHOTREXATE SODIUM. [Suspect]
     Active Substance: METHOTREXATE SODIUM
     Dosage: 20 MG/ WEEK

REACTIONS (7)
  - Arthralgia [Unknown]
  - Peripheral swelling [Unknown]
  - Joint dislocation [Unknown]
  - Gait disturbance [Unknown]
  - Joint swelling [Unknown]
  - Hand deformity [Unknown]
  - Joint range of motion decreased [Unknown]
